FAERS Safety Report 6233997-8 (Version None)
Quarter: 2009Q2

REPORT INFORMATION
  Report Type: 
  Country: None (occurrence: None)
  Receive Date: 20090616
  Receipt Date: 20090616
  Transmission Date: 20091009
  Serious: No
  Sender: FDA-Public Use
  Company Number: None

PATIENT
  Age: 15 Year
  Sex: Male
  Weight: 83.9154 kg

DRUGS (1)
  1. KETOCONAZOLE [Suspect]
     Indication: SKIN DISCOLOURATION
     Dosage: 1 TABLET DAILY PO
     Route: 048
     Dates: start: 20090514, end: 20090611

REACTIONS (5)
  - ANOREXIA [None]
  - ERYTHEMA [None]
  - OEDEMA PERIPHERAL [None]
  - PRURITUS [None]
  - URTICARIA [None]
